FAERS Safety Report 16655154 (Version 1)
Quarter: 2019Q3

REPORT INFORMATION
  Report Type: Report from Study
  Country: ES (occurrence: ES)
  Receive Date: 20190801
  Receipt Date: 20190801
  Transmission Date: 20191004
  Serious: Yes (Other)
  Sender: FDA-Public Use
  Company Number: ES-TEVA-2019-ES-1085925

PATIENT
  Age: 39 Year
  Sex: Female

DRUGS (5)
  1. MICOFENOLATO DE MOFETILO (7330LM) [Suspect]
     Active Substance: MYCOPHENOLATE MOFETIL
     Indication: RENAL TRANSPLANT
     Dosage: 720MG EVERY 12 HOURS
     Route: 048
     Dates: start: 20180923, end: 20181005
  2. FUROSEMIDA (1615A) [Suspect]
     Active Substance: FUROSEMIDE
     Indication: POLYURIA
     Dosage: 60MG EVERY 8 HOURS
     Route: 048
     Dates: start: 20180923, end: 20181003
  3. SEPTRIN 80 MG/400 MG COMPRIMIDOS , 100 COMPRIMIDOS [Suspect]
     Active Substance: SULFAMETHOXAZOLE\TRIMETHOPRIM
     Indication: URINARY TRACT INFECTION
     Dosage: 1 CP EVERY 48 HOURS
     Route: 048
     Dates: start: 20180923
  4. TACROLIMUS (2694A) [Suspect]
     Active Substance: TACROLIMUS
     Indication: RENAL TRANSPLANT
     Dosage: 6 MILLIGRAM DAILY; 5 - 10 MG EVERY 24 HOURS AT START, 6 MG/24 H HIGH
     Route: 048
     Dates: start: 20180923
  5. VALGANCICLOVIR (2861A) [Suspect]
     Active Substance: VALGANCICLOVIR
     Indication: PROPHYLAXIS
     Dosage: 450MG EVERY 48 HOURS
     Route: 048
     Dates: start: 20180923

REACTIONS (1)
  - Pancreatitis acute [Recovered/Resolved]

NARRATIVE: CASE EVENT DATE: 20180927
